FAERS Safety Report 8164491 (Version 46)
Quarter: 2016Q1

REPORT INFORMATION
  Report Type: Report from Study
  Country: CA (occurrence: CA)
  Receive Date: 20110930
  Receipt Date: 20160329
  Transmission Date: 20160526
  Serious: Yes (Other)
  Sender: FDA-Public Use
  Company Number: PHHY2011CA76722

PATIENT
  Age: 35 Year
  Sex: Female

DRUGS (10)
  1. SANDOSTATIN LAR DEPOT [Suspect]
     Active Substance: OCTREOTIDE ACETATE
     Dosage: 20 MG, QMO (EVERY 28 DAYS)
     Route: 030
  2. SANDOSTATIN [Suspect]
     Active Substance: OCTREOTIDE ACETATE
     Indication: PANCREATIC NEUROENDOCRINE TUMOUR
     Dosage: 300 UG, TID
     Route: 058
     Dates: start: 20110722
  3. AFINITOR [Suspect]
     Active Substance: EVEROLIMUS
     Indication: PANCREATIC NEUROENDOCRINE TUMOUR
     Dosage: 5 MG, QD
     Route: 048
     Dates: start: 20110818
  4. AFINITOR [Suspect]
     Active Substance: EVEROLIMUS
     Dosage: 10 MG, QD
     Route: 048
     Dates: start: 20121002
  5. SANDOSTATIN LAR DEPOT [Suspect]
     Active Substance: OCTREOTIDE ACETATE
     Dosage: 20 MG, QMO
     Route: 030
     Dates: start: 20121113
  6. AFINITOR [Suspect]
     Active Substance: EVEROLIMUS
     Dosage: 5 MG, QD
     Route: 048
  7. ELAVIL [Concomitant]
     Active Substance: AMITRIPTYLINE HYDROCHLORIDE
     Indication: PRODUCT USED FOR UNKNOWN INDICATION
     Dosage: 10 MG, BID
     Route: 065
  8. AFINITOR [Suspect]
     Active Substance: EVEROLIMUS
     Dosage: 10 MG, UNK
     Route: 065
     Dates: start: 2011
  9. AFINITOR [Suspect]
     Active Substance: EVEROLIMUS
     Dosage: 5 MG, QD
     Route: 048
     Dates: start: 20111028
  10. SANDOSTATIN LAR DEPOT [Suspect]
     Active Substance: OCTREOTIDE ACETATE
     Indication: PANCREATIC NEUROENDOCRINE TUMOUR
     Dosage: 20 MG, QMO
     Route: 030
     Dates: start: 20110808, end: 20120827

REACTIONS (56)
  - Myalgia [Unknown]
  - Flushing [Unknown]
  - Headache [Recovered/Resolved]
  - Insomnia [Unknown]
  - Paraesthesia [Unknown]
  - Injection site reaction [Unknown]
  - Eye swelling [Unknown]
  - Nasopharyngitis [Unknown]
  - Eye infection [Unknown]
  - Abdominal pain upper [Recovered/Resolved]
  - Fatigue [Unknown]
  - Abscess oral [Unknown]
  - Hyperglycaemia [Recovering/Resolving]
  - Influenza like illness [Unknown]
  - Body temperature decreased [Unknown]
  - Injection site pruritus [Unknown]
  - Hepatic pain [Unknown]
  - Inappropriate schedule of drug administration [Unknown]
  - Asthenia [Unknown]
  - Secretion discharge [Unknown]
  - Abdominal distension [Recovered/Resolved]
  - Dysphagia [Unknown]
  - Oral mucosal erythema [Unknown]
  - Erythema [Unknown]
  - Abdominal pain [Recovered/Resolved]
  - Arthralgia [Unknown]
  - Eye disorder [Recovered/Resolved]
  - Hypoglycaemia [Recovered/Resolved]
  - Bronchitis [Unknown]
  - Pyrexia [Unknown]
  - Diarrhoea [Unknown]
  - Ocular hyperaemia [Unknown]
  - Dry eye [Unknown]
  - Migraine [Unknown]
  - Malaise [Unknown]
  - Dry skin [Unknown]
  - Dyspepsia [Unknown]
  - Acne [Unknown]
  - Cough [Unknown]
  - Constipation [Unknown]
  - Drug intolerance [Unknown]
  - Cholelithiasis [Unknown]
  - Malignant neoplasm progression [Unknown]
  - Metastases to liver [Unknown]
  - Chills [Unknown]
  - Eye irritation [Unknown]
  - Injection site erythema [Unknown]
  - Injection site pain [Unknown]
  - Toothache [Unknown]
  - Pain in extremity [Unknown]
  - Swelling face [Unknown]
  - Nausea [Unknown]
  - Lacrimation increased [Unknown]
  - Back pain [Unknown]
  - Weight decreased [Unknown]
  - Vomiting [Unknown]

NARRATIVE: CASE EVENT DATE: 2011
